FAERS Safety Report 7849289-7 (Version None)
Quarter: 2011Q4

REPORT INFORMATION
  Report Type: 
  Country: None (occurrence: None)
  Receive Date: 20111021
  Receipt Date: 20111010
  Transmission Date: 20120403
  Serious: Yes (Hospitalization)
  Sender: FDA-Public Use
  Company Number: CRC-11-252

PATIENT
  Sex: Female

DRUGS (3)
  1. TEGRETOL [Concomitant]
  2. PHENYTOIN SODIUM CAP [Suspect]
     Indication: CONVULSION
  3. PHENOBARBITAL TAB [Concomitant]

REACTIONS (2)
  - DRUG INEFFECTIVE [None]
  - PRODUCT SUBSTITUTION ISSUE [None]
